FAERS Safety Report 10228875 (Version 1)
Quarter: 2014Q2

REPORT INFORMATION
  Report Type: Spontaneous
  Country: CN (occurrence: CN)
  Receive Date: 20140610
  Receipt Date: 20140610
  Transmission Date: 20141212
  Serious: Yes (Hospitalization)
  Sender: FDA-Public Use
  Company Number: CN-ASTRAZENECA-2014SE40362

PATIENT
  Age: 1101 Day
  Sex: Female
  Weight: 13 kg

DRUGS (6)
  1. BUDESONIDE [Suspect]
     Indication: PROPHYLAXIS AGAINST BRONCHOSPASM
     Route: 055
     Dates: start: 20120402, end: 20120417
  2. TERBUTALINE SULFATE [Suspect]
     Indication: PROPHYLAXIS AGAINST BRONCHOSPASM
     Route: 055
     Dates: start: 20120402, end: 20120417
  3. AMBROXOL [Suspect]
     Indication: SPUTUM ABNORMAL
     Route: 041
     Dates: start: 20120402, end: 20120417
  4. IPRATROPIUM BROMIDE [Suspect]
     Indication: PROPHYLAXIS AGAINST BRONCHOSPASM
     Route: 055
     Dates: start: 20120402, end: 20120417
  5. CEFUROXIME [Suspect]
     Indication: INFECTION
     Route: 041
     Dates: start: 20120402, end: 20120415
  6. CEFTAZIDIME [Suspect]
     Indication: INFECTION
     Route: 042
     Dates: start: 20120415, end: 20140417

REACTIONS (2)
  - Leukopenia [Recovering/Resolving]
  - Neutropenia [Unknown]
